FAERS Safety Report 6973788-3 (Version None)
Quarter: 2010Q3

REPORT INFORMATION
  Report Type: 
  Country: None (occurrence: None)
  Receive Date: 20100909
  Receipt Date: 20100901
  Transmission Date: 20110219
  Serious: Yes (Hospitalization)
  Sender: FDA-Public Use
  Company Number: A0878949A

PATIENT
  Sex: Female

DRUGS (8)
  1. TRANYLCYPROMINE SULFATE [Suspect]
     Dosage: 80MG PER DAY
     Route: 048
     Dates: start: 20040901
  2. ADDERALL 10 [Concomitant]
  3. CYTOMEL [Concomitant]
  4. SAPHRIS [Concomitant]
  5. UNKNOWN MEDICATION [Concomitant]
  6. TEGRETOL [Concomitant]
  7. PROGESTERONE [Concomitant]
  8. NASONEX [Concomitant]

REACTIONS (4)
  - DRUG INEFFECTIVE [None]
  - ELECTROCONVULSIVE THERAPY [None]
  - FEELING ABNORMAL [None]
  - THERAPEUTIC RESPONSE UNEXPECTED WITH DRUG SUBSTITUTION [None]
